FAERS Safety Report 5276611-0 (Version None)
Quarter: 2007Q1

REPORT INFORMATION
  Report Type: 
  Country: None (occurrence: None)
  Receive Date: 20070327
  Receipt Date: 20070316
  Transmission Date: 20070707
  Serious: Yes (Hospitalization)
  Sender: FDA-Public Use
  Company Number: PHHO2007JP05026

PATIENT
  Age: 63 Year
  Sex: Male
  Weight: 64 kg

DRUGS (2)
  1. DIOVAN [Suspect]
     Indication: HYPERTENSION
     Dosage: 80 MG, QD
     Route: 048
     Dates: start: 20040909, end: 20050816
  2. NORVASC [Concomitant]

REACTIONS (2)
  - ALCOHOL POISONING [None]
  - ALCOHOLIC LIVER DISEASE [None]
